FAERS Safety Report 9189600 (Version 1)
Quarter: 2013Q1

REPORT INFORMATION
  Report Type: Spontaneous
  Country: GB (occurrence: GB)
  Receive Date: 20130326
  Receipt Date: 20130326
  Transmission Date: 20140127
  Serious: Yes (Other)
  Sender: FDA-Public Use
  Company Number: GB-JNJFOC-20130312180

PATIENT
  Sex: Male

DRUGS (4)
  1. REMICADE [Suspect]
     Indication: PRODUCT USED FOR UNKNOWN INDICATION
     Route: 042
     Dates: start: 201303
  2. AZATHIOPRINE [Concomitant]
     Route: 065
  3. MULTIVITAMINS [Concomitant]
     Route: 065
  4. PARACETAMOL [Concomitant]
     Route: 065

REACTIONS (5)
  - Hypersensitivity [Unknown]
  - Feeling of body temperature change [Unknown]
  - Abdominal pain [Unknown]
  - Tachycardia [Unknown]
  - Infusion related reaction [Unknown]
